FAERS Safety Report 9263261 (Version 1)
Quarter: 2013Q2

REPORT INFORMATION
  Report Type: Spontaneous
  Country: AU (occurrence: AU)
  Receive Date: 20130430
  Receipt Date: 20130430
  Transmission Date: 20140414
  Serious: Yes (Other)
  Sender: FDA-Public Use
  Company Number: AU-ROCHE-1219817

PATIENT
  Sex: Female

DRUGS (9)
  1. HERCEPTIN [Suspect]
     Indication: BREAST CANCER METASTATIC
     Route: 065
  2. XELODA [Suspect]
     Indication: BREAST CANCER METASTATIC
     Route: 065
  3. TAXOTERE [Concomitant]
     Indication: BREAST CANCER METASTATIC
  4. VINORELBINE [Concomitant]
     Indication: BREAST CANCER METASTATIC
  5. TYKERB [Concomitant]
     Indication: BREAST CANCER METASTATIC
  6. CARBOPLATIN [Concomitant]
     Indication: BREAST CANCER METASTATIC
  7. GEMCITABINE [Concomitant]
     Indication: BREAST CANCER METASTATIC
  8. ADRIAMYCIN [Concomitant]
     Indication: BREAST CANCER METASTATIC
  9. CYCLOPHOSPHAMIDE [Concomitant]
     Indication: BREAST CANCER METASTATIC

REACTIONS (2)
  - Disease progression [Unknown]
  - Cough [Unknown]
